FAERS Safety Report 6948858-6 (Version None)
Quarter: 2010Q3

REPORT INFORMATION
  Report Type: 
  Country: None (occurrence: None)
  Receive Date: 20100828
  Receipt Date: 20091120
  Transmission Date: 20110219
  Serious: No
  Sender: FDA-Public Use
  Company Number: US-ABBOTT-09P-163-0609908-00

PATIENT
  Sex: Female
  Weight: 58.566 kg

DRUGS (6)
  1. NIASPAN [Suspect]
     Indication: PRODUCT USED FOR UNKNOWN INDICATION
     Dosage: NIGHTLY
     Route: 048
     Dates: start: 20091112, end: 20091115
  2. MULTI-VITAMIN [Concomitant]
     Indication: PRODUCT USED FOR UNKNOWN INDICATION
     Route: 048
  3. VITAMIN D [Concomitant]
     Indication: PRODUCT USED FOR UNKNOWN INDICATION
     Route: 048
  4. LOVAZA [Concomitant]
     Indication: PRODUCT USED FOR UNKNOWN INDICATION
     Route: 048
  5. CALCIUM [Concomitant]
     Indication: PRODUCT USED FOR UNKNOWN INDICATION
     Route: 048
  6. BYSTOLIC [Concomitant]
     Indication: PRODUCT USED FOR UNKNOWN INDICATION
     Route: 048

REACTIONS (11)
  - ASTHENIA [None]
  - CHILLS [None]
  - CHROMATURIA [None]
  - EYE SWELLING [None]
  - FEELING COLD [None]
  - FLUSHING [None]
  - GAIT DISTURBANCE [None]
  - MALAISE [None]
  - SKIN DISCOLOURATION [None]
  - URINE ODOUR ABNORMAL [None]
  - VISION BLURRED [None]
